FAERS Safety Report 9764954 (Version 1)
Quarter: 2013Q4

REPORT INFORMATION
  Report Type: Spontaneous
  Country: US (occurrence: US)
  Receive Date: 20131217
  Receipt Date: 20131217
  Transmission Date: 20140711
  Serious: No
  Sender: FDA-Public Use
  Company Number: US-BIOGENIDEC-2013BI113103

PATIENT
  Age: 45 Year
  Sex: Female

DRUGS (1)
  1. TECFIDERA [Suspect]
     Indication: MULTIPLE SCLEROSIS
     Route: 048

REACTIONS (9)
  - Anxiety [Unknown]
  - Band sensation [Unknown]
  - Dyspnoea [Unknown]
  - Hypoaesthesia [Unknown]
  - Mental impairment [Unknown]
  - Nocturnal fear [Unknown]
  - Palpitations [Unknown]
  - Mood swings [Unknown]
  - Infection [Unknown]
